FAERS Safety Report 9850309 (Version 2)
Quarter: 2014Q1

REPORT INFORMATION
  Report Type: Report from Study
  Country: DE (occurrence: DE)
  Receive Date: 20140128
  Receipt Date: 20140207
  Transmission Date: 20141002
  Serious: Yes (Other)
  Sender: FDA-Public Use
  Company Number: DE-GLAXOSMITHKLINE-B0963917A

PATIENT
  Sex: Female
  Weight: 60 kg

DRUGS (2)
  1. PAZOPANIB [Suspect]
     Indication: OVARIAN CANCER
     Dosage: 200MG PER DAY
     Route: 048
     Dates: start: 20131203
  2. TOPOTECAN [Suspect]
     Indication: OVARIAN CANCER
     Dosage: 4MG CYCLIC
     Route: 042
     Dates: start: 20131203

REACTIONS (1)
  - Alanine aminotransferase increased [Not Recovered/Not Resolved]
